FAERS Safety Report 8574312-4 (Version None)
Quarter: 2012Q3

REPORT INFORMATION
  Report Type: 
  Country: None (occurrence: None)
  Receive Date: 20120806
  Receipt Date: 20120801
  Transmission Date: 20120928
  Serious: Yes (Other)
  Sender: FDA-Public Use
  Company Number: US-BAYER-2012-078648

PATIENT
  Age: 32 Year
  Sex: Female

DRUGS (1)
  1. ASPIRIN [Suspect]
     Dosage: 2 UNK, UNK
     Route: 048
     Dates: start: 20120801, end: 20120801

REACTIONS (3)
  - COLD SWEAT [None]
  - HEART RATE INCREASED [None]
  - LOSS OF CONSCIOUSNESS [None]
